FAERS Safety Report 10847356 (Version 2)
Quarter: 2015Q3

REPORT INFORMATION
  Report Type: Report from Study
  Country: US (occurrence: US)
  Receive Date: 20150220
  Receipt Date: 20150729
  Transmission Date: 20151125
  Serious: Yes (Death)
  Sender: FDA-Public Use
  Company Number: US-AMGEN-USACT2015016078

PATIENT
  Age: 61 Year
  Sex: Male
  Weight: 67 kg

DRUGS (2)
  1. DEXAMETHASONE. [Concomitant]
     Active Substance: DEXAMETHASONE
     Indication: PLASMA CELL MYELOMA
     Dosage: 40 MG, PER CHEMO REGIM
     Route: 042
     Dates: start: 20140814
  2. CARFILZOMIB [Suspect]
     Active Substance: CARFILZOMIB
     Indication: PLASMA CELL MYELOMA
     Dosage: 56 MG/M2, PER CHEMO REGIM
     Route: 042
     Dates: start: 20140814

REACTIONS (1)
  - Death [Fatal]

NARRATIVE: CASE EVENT DATE: 20150213
